FAERS Safety Report 9319659 (Version 1)
Quarter: 2013Q2

REPORT INFORMATION
  Report Type: Spontaneous
  Country: US (occurrence: None)
  Receive Date: 20130529
  Receipt Date: 20130529
  Transmission Date: 20140414
  Serious: Yes (Other)
  Sender: FDA-Public Use
  Company Number: None

PATIENT
  Age: 46 Year
  Sex: Female
  Weight: 58.24 kg

DRUGS (2)
  1. SURAMIN [Suspect]
     Indication: LUNG CANCER METASTATIC
     Route: 041
     Dates: start: 20130516, end: 20130516
  2. COUMADIN [Concomitant]

REACTIONS (2)
  - Prothrombin time prolonged [None]
  - International normalised ratio increased [None]
